FAERS Safety Report 4312081-4 (Version None)
Quarter: 2004Q1

REPORT INFORMATION
  Report Type: 
  Country: None (occurrence: None)
  Receive Date: 20040304
  Receipt Date: 20040304
  Transmission Date: 20041129
  Serious: Yes (Life-Threatening)
  Sender: FDA-Public Use
  Company Number: None

PATIENT
  Age: 75 Year
  Sex: Male
  Weight: 68 kg

DRUGS (6)
  1. TEQUIN [Suspect]
     Indication: PNEUMONIA
     Dosage: 400 MG DAILY ORAL
     Route: 048
     Dates: start: 20040127, end: 20040202
  2. LIPITOR [Concomitant]
  3. ATENOLOL [Concomitant]
  4. NORVASC [Concomitant]
  5. NITROGLYCERIN [Concomitant]
  6. ASPIRIN [Concomitant]

REACTIONS (4)
  - AGRANULOCYTOSIS [None]
  - APLASTIC ANAEMIA [None]
  - NEUTROPENIA [None]
  - PNEUMONIA [None]
